APPROVED DRUG PRODUCT: GENERLAC
Active Ingredient: LACTULOSE
Strength: 10GM/15ML
Dosage Form/Route: SOLUTION;ORAL, RECTAL
Application: A074603 | Product #001 | TE Code: AA
Applicant: CHARTWELL RX SCIENCES LLC
Approved: Oct 31, 1996 | RLD: No | RS: No | Type: RX